FAERS Safety Report 23472203 (Version 2)
Quarter: 2024Q1

REPORT INFORMATION
  Report Type: Report from Study
  Country: US (occurrence: US)
  Receive Date: 20240202
  Receipt Date: 20240219
  Transmission Date: 20240409
  Serious: Yes (Hospitalization, Other)
  Sender: FDA-Public Use
  Company Number: US-JAZZ PHARMACEUTICALS-2024-US-001796

PATIENT
  Age: 24 Year
  Sex: Male
  Weight: 95.7 kg

DRUGS (18)
  1. EPIDIOLEX [Suspect]
     Active Substance: CANNABIDIOL
     Indication: Lennox-Gastaut syndrome
     Dosage: 5.5 MILLIGRAM, BID
     Route: 048
  2. OXTELLAR XR [Concomitant]
     Active Substance: OXCARBAZEPINE
     Indication: Product used for unknown indication
     Dosage: 600 MILLIGRAM, TABLET ER 24H
  3. OXTELLAR XR [Concomitant]
     Active Substance: OXCARBAZEPINE
     Dosage: 300 MILLIGRAM,TABLET ER 24H
  4. METFORMIN [Concomitant]
     Active Substance: METFORMIN HYDROCHLORIDE
     Indication: Product used for unknown indication
     Dosage: UNK
  5. MELOXICAM [Concomitant]
     Active Substance: MELOXICAM
     Indication: Product used for unknown indication
  6. LISINOPRIL [Concomitant]
     Active Substance: LISINOPRIL
     Indication: Product used for unknown indication
  7. CONCERTA [Concomitant]
     Active Substance: METHYLPHENIDATE HYDROCHLORIDE
     Indication: Product used for unknown indication
  8. VIMPAT [Concomitant]
     Active Substance: LACOSAMIDE
     Indication: Product used for unknown indication
  9. ONFI [Concomitant]
     Active Substance: CLOBAZAM
     Indication: Product used for unknown indication
  10. ZIPRASIDONE HYDROCHLORIDE [Concomitant]
     Active Substance: ZIPRASIDONE HYDROCHLORIDE
     Indication: Product used for unknown indication
  11. PREVACID [Concomitant]
     Active Substance: LANSOPRAZOLE
     Indication: Product used for unknown indication
  12. VITAMIN E [Concomitant]
     Active Substance: .ALPHA.-TOCOPHEROL
     Indication: Product used for unknown indication
     Dosage: 100/0.25 ML DROPS
  13. HYDROCODONE BITARTRATE AND ACETAMINOPHEN [Concomitant]
     Active Substance: ACETAMINOPHEN\HYDROCODONE BITARTRATE
     Indication: Product used for unknown indication
  14. VITAMIN C [Concomitant]
     Active Substance: ASCORBIC ACID
     Indication: Product used for unknown indication
  15. IRON [Concomitant]
     Active Substance: IRON
     Indication: Product used for unknown indication
  16. VITAMIN D2 [Concomitant]
     Active Substance: ERGOCALCIFEROL
     Indication: Product used for unknown indication
  17. FERROUS SULFATE [Concomitant]
     Active Substance: FERROUS SULFATE
     Indication: Product used for unknown indication
  18. AMOXICILLIN [Concomitant]
     Active Substance: AMOXICILLIN
     Indication: Product used for unknown indication

REACTIONS (3)
  - Seizure [Unknown]
  - COVID-19 [Unknown]
  - Influenza [Unknown]

NARRATIVE: CASE EVENT DATE: 20231101
